FAERS Safety Report 13572837 (Version 2)
Quarter: 2017Q3

REPORT INFORMATION
  Report Type: Report from Study
  Country: JP (occurrence: JP)
  Receive Date: 20170523
  Receipt Date: 20170721
  Transmission Date: 20171127
  Serious: Yes (Death)
  Sender: FDA-Public Use
  Company Number: JP-PFIZER INC-2017216945

PATIENT

DRUGS (3)
  1. PACLITAXEL. [Suspect]
     Active Substance: PACLITAXEL
     Indication: ADENOCARCINOMA PANCREAS
     Dosage: 50 MG/M2, CYCLIC (ON DAYS 1 AND 8)
     Route: 042
  2. PACLITAXEL. [Suspect]
     Active Substance: PACLITAXEL
     Dosage: 20 MG/M2, CYCLIC (ON DAYS 1 AND 8)
  3. TS-1 [Suspect]
     Active Substance: GIMERACIL\OTERACIL\TEGAFUR
     Indication: ADENOCARCINOMA PANCREAS
     Dosage: 80 MG/M2, DAILY (FOR 14 CONSECUTIVE DAYS, FOLLOWED BY 7 DAYS OF REST)
     Route: 048

REACTIONS (1)
  - Mesenteric artery thrombosis [Fatal]
